FAERS Safety Report 9321724 (Version 1)
Quarter: 2013Q2

REPORT INFORMATION
  Report Type: Spontaneous
  Country: US (occurrence: None)
  Receive Date: 20130528
  Receipt Date: 20130528
  Transmission Date: 20140414
  Serious: Yes (Other)
  Sender: FDA-Public Use
  Company Number: 1726202

PATIENT
  Age: 13 Year
  Sex: Male

DRUGS (3)
  1. METHYLPREDNISOLONE [Suspect]
     Indication: APLASTIC ANAEMIA
     Dosage: NOT REPORTED, UNKNOWN, UNKNOWN
  2. ATG [Suspect]
     Indication: APLASTIC ANAEMIA
     Dosage: NOT REPORTED , UNKNOWN, UNKNOWN
  3. CYCLOSPORINE [Suspect]
     Indication: APLASTIC ANAEMIA
     Dosage: NOT REPORTED, UNKOWN , UNKNOWN

REACTIONS (3)
  - Hypertension [None]
  - Headache [None]
  - Posterior reversible encephalopathy syndrome [None]
